FAERS Safety Report 8073137-6 (Version None)
Quarter: 2011Q4

REPORT INFORMATION
  Report Type: 
  Country: None (occurrence: None)
  Receive Date: 20111221
  Receipt Date: 20110401
  Transmission Date: 20120403
  Serious: Yes (Other)
  Sender: FDA-Public Use
  Company Number: PHHY2011US23434

PATIENT
  Age: 64 Year
  Sex: Female
  Weight: 105.7 kg

DRUGS (1)
  1. EXJADE [Suspect]
     Indication: IRON OVERLOAD
     Dosage: 2125 MG, QD, ORAL
     Route: 048
     Dates: start: 20110215, end: 20110217

REACTIONS (3)
  - DRUG INTOLERANCE [None]
  - DIARRHOEA [None]
  - NAUSEA [None]
